FAERS Safety Report 6057707-2 (Version None)
Quarter: 2009Q1

REPORT INFORMATION
  Report Type: 
  Country: None (occurrence: None)
  Receive Date: 20090129
  Receipt Date: 20090120
  Transmission Date: 20090719
  Serious: Yes (Hospitalization)
  Sender: FDA-Public Use
  Company Number: US-BAYER-200910191BCC

PATIENT
  Age: 47 Year
  Sex: Male

DRUGS (5)
  1. ASPIRIN [Suspect]
     Indication: MYOCARDIAL INFARCTION
     Dosage: TOTAL DAILY DOSE: 81 MG  UNIT DOSE: 81 MG
     Route: 048
     Dates: start: 20080401, end: 20080710
  2. PLAVIX [Suspect]
     Indication: MYOCARDIAL INFARCTION
     Dosage: TOTAL DAILY DOSE: 75 MG  UNIT DOSE: 75 MG
     Route: 048
     Dates: start: 20080401
  3. ALTACE [Concomitant]
  4. COREG [Concomitant]
  5. OMEGA 3 FATTY ACIDS [Concomitant]

REACTIONS (2)
  - CORONARY ARTERY RESTENOSIS [None]
  - MYOCARDIAL INFARCTION [None]
